FAERS Safety Report 16824764 (Version 2)
Quarter: 2020Q2

REPORT INFORMATION
  Report Type: Spontaneous
  Country: US (occurrence: US)
  Receive Date: 20190918
  Receipt Date: 20200601
  Transmission Date: 20200713
  Serious: Yes (Death, Hospitalization)
  Sender: FDA-Public Use
  Company Number: US-NOVOPROD-684993

PATIENT
  Age: 59 Year
  Sex: Male
  Weight: 123.99 kg

DRUGS (1)
  1. VICTOZA [Suspect]
     Active Substance: LIRAGLUTIDE
     Indication: TYPE 2 DIABETES MELLITUS
     Dosage: 1.8 MG, QD
     Route: 058
     Dates: start: 20160719, end: 201712

REACTIONS (1)
  - Pancreatic carcinoma stage II [Fatal]

NARRATIVE: CASE EVENT DATE: 20171116
